FAERS Safety Report 8312659-7 (Version None)
Quarter: 2012Q2

REPORT INFORMATION
  Report Type: 
  Country: None (occurrence: None)
  Receive Date: 20120426
  Receipt Date: 20120416
  Transmission Date: 20120825
  Serious: Yes (Other)
  Sender: FDA-Public Use
  Company Number: ES-BRISTOL-MYERS SQUIBB COMPANY-16544918

PATIENT

DRUGS (1)
  1. TRIAMCINOLONE ACETONIDE [Suspect]

REACTIONS (1)
  - EYE DISORDER [None]
